FAERS Safety Report 7298253-8 (Version None)
Quarter: 2011Q1

REPORT INFORMATION
  Report Type: 
  Country: None (occurrence: None)
  Receive Date: 20110208
  Receipt Date: 20110124
  Transmission Date: 20110831
  Serious: Yes (Other)
  Sender: FDA-Public Use
  Company Number: SPI201100014

PATIENT
  Age: 23 Year
  Sex: Female
  Weight: 56.7 kg

DRUGS (2)
  1. AMITIZA [Suspect]
     Indication: CONSTIPATION
     Dosage: ONE DOSE, ORAL
     Route: 048
     Dates: start: 20100301, end: 20100301
  2. ORAL CONTRACEPTIVE NOS [Concomitant]

REACTIONS (1)
  - ANAPHYLACTIC REACTION [None]
